FAERS Safety Report 5098993-5 (Version None)
Quarter: 2006Q3

REPORT INFORMATION
  Report Type: 
  Country: None (occurrence: None)
  Receive Date: 20060731
  Receipt Date: 20050601
  Transmission Date: 20061208
  Serious: Yes (Other)
  Sender: FDA-Public Use
  Company Number: US-2005-009525

PATIENT
  Age: 47 Year
  Sex: Female
  Weight: 111.1 kg

DRUGS (1)
  1. MAGNEVIST [Suspect]
     Indication: NUCLEAR MAGNETIC RESONANCE IMAGING
     Dosage: 20 ML, 1 DOSE, INTRAVENOUS
     Route: 042
     Dates: start: 20050531, end: 20050531

REACTIONS (7)
  - CYANOSIS [None]
  - ERYTHEMA [None]
  - HYPERSENSITIVITY [None]
  - IRRITABLE BOWEL SYNDROME [None]
  - LOCAL SWELLING [None]
  - SWELLING FACE [None]
  - VOMITING [None]
